FAERS Safety Report 23926822 (Version 1)
Quarter: 2024Q2

REPORT INFORMATION
  Report Type: Report from Study
  Country: US (occurrence: US)
  Receive Date: 20240531
  Receipt Date: 20240531
  Transmission Date: 20240716
  Serious: Yes (Death)
  Sender: FDA-Public Use
  Company Number: US-PFIZER INC-PV202300209149

PATIENT
  Age: 75 Year
  Sex: Female

DRUGS (7)
  1. IBRANCE [Suspect]
     Active Substance: PALBOCICLIB
     Indication: Breast cancer
     Dosage: ONCE A DAY BY MOUTH FOR 21 DAYS ON AND 7 DAYS OFF
     Route: 048
     Dates: start: 20231207
  2. IBRANCE [Suspect]
     Active Substance: PALBOCICLIB
     Dosage: 125 MG, CYCLIC (DAILY FOR 21 DAYS AND 7 DAYS OFF)
     Route: 048
  3. IBRANCE [Suspect]
     Active Substance: PALBOCICLIB
     Dosage: 125 MG, CYCLIC (ONCE DAILY FOR 21 DAYS ON, 7 DAYS OFF (28 DAY CYCLE))
     Route: 048
  4. IBRANCE [Suspect]
     Active Substance: PALBOCICLIB
     Dosage: 125MG TABLETS BY MOUTH ONCE DAILY FOR 21 DAYS ON, 7 DAYS OFF (28 DAY CYCLE)
     Route: 048
     Dates: start: 202312
  5. OTEZLA [Concomitant]
     Active Substance: APREMILAST
     Dosage: UNK
  6. KISQALI [Concomitant]
     Active Substance: RIBOCICLIB
     Dosage: TD 600MG/DY
  7. LETROZOLE [Concomitant]
     Active Substance: LETROZOLE
     Dosage: UNK

REACTIONS (5)
  - Death [Fatal]
  - Nausea [Recovered/Resolved]
  - Fatigue [Not Recovered/Not Resolved]
  - Pain [Not Recovered/Not Resolved]
  - Mobility decreased [Not Recovered/Not Resolved]

NARRATIVE: CASE EVENT DATE: 20231201
